FAERS Safety Report 16365892 (Version 1)
Quarter: 2019Q2

REPORT INFORMATION
  Report Type: Spontaneous
  Country: JP (occurrence: JP)
  Receive Date: 20190529
  Receipt Date: 20190529
  Transmission Date: 20190711
  Serious: Yes (Death, Other)
  Sender: FDA-Public Use
  Company Number: PHHY2019JP122414

PATIENT
  Age: 45 Year
  Sex: Male

DRUGS (3)
  1. PAZOPANIB [Suspect]
     Active Substance: PAZOPANIB
     Indication: EWING^S SARCOMA
     Dosage: 800 MG, QD
     Route: 065
  2. GRANULOCYTE COLONY STIMULATING FACTOR [Concomitant]
     Active Substance: GRANULOCYTE COLONY-STIMULATING FACTOR NOS
     Indication: BONE MARROW FAILURE
     Route: 065
  3. PAZOPANIB [Suspect]
     Active Substance: PAZOPANIB
     Indication: PRIMITIVE NEUROECTODERMAL TUMOUR

REACTIONS (8)
  - Malignant neoplasm progression [Fatal]
  - Product use in unapproved indication [Unknown]
  - Ewing^s sarcoma [Fatal]
  - Primitive neuroectodermal tumour [Fatal]
  - Dyspnoea [Fatal]
  - Neutropenia [Unknown]
  - Fatigue [Fatal]
  - Thrombocytopenia [Unknown]
